FAERS Safety Report 6316678-1 (Version None)
Quarter: 2009Q3

REPORT INFORMATION
  Report Type: 
  Country: None (occurrence: None)
  Receive Date: 20090820
  Receipt Date: 20090817
  Transmission Date: 20100115
  Serious: Yes (Hospitalization)
  Sender: FDA-Public Use
  Company Number: US-MERCK-0908USA01950

PATIENT

DRUGS (2)
  1. EMEND [Suspect]
     Route: 048
     Dates: start: 20090805, end: 20090805
  2. ANTINEOPLASTIC (UNSPECIFIED) [Concomitant]
     Route: 065

REACTIONS (2)
  - BLEPHAROSPASM [None]
  - SENSATION OF HEAVINESS [None]
